FAERS Safety Report 20740705 (Version 2)
Quarter: 2022Q2

REPORT INFORMATION
  Report Type: Spontaneous
  Country: US (occurrence: US)
  Receive Date: 20220422
  Receipt Date: 20220426
  Transmission Date: 20220720
  Serious: Yes (Hospitalization, Other)
  Sender: FDA-Public Use
  Company Number: US-BoehringerIngelheim-2022-BI-166702

PATIENT
  Age: 56 Year
  Sex: Female

DRUGS (1)
  1. JARDIANCE [Suspect]
     Active Substance: EMPAGLIFLOZIN
     Indication: Type 2 diabetes mellitus
     Route: 065

REACTIONS (4)
  - Urinary tract infection [Recovering/Resolving]
  - Urosepsis [Recovering/Resolving]
  - Fungaemia [Recovering/Resolving]
  - Nephrolithiasis [Recovering/Resolving]
